FAERS Safety Report 6504107-4 (Version None)
Quarter: 2009Q4

REPORT INFORMATION
  Report Type: 
  Country: None (occurrence: None)
  Receive Date: 20091217
  Receipt Date: 20091208
  Transmission Date: 20100525
  Serious: Yes (Death, Other)
  Sender: FDA-Public Use
  Company Number: US-BAXTER-2009BH016202

PATIENT
  Age: 61 Year
  Sex: Male
  Weight: 87 kg

DRUGS (2)
  1. DIANEAL [Suspect]
     Indication: PERITONEAL DIALYSIS
     Route: 033
     Dates: start: 20090116, end: 20091016
  2. VANCOMYCIN [Concomitant]
     Indication: PERITONITIS
     Route: 033
     Dates: end: 20091016

REACTIONS (2)
  - FALL [None]
  - HAEMORRHAGE [None]
